FAERS Safety Report 14778657 (Version 3)
Quarter: 2018Q2

REPORT INFORMATION
  Report Type: Spontaneous
  Country: SG (occurrence: SG)
  Receive Date: 20180419
  Receipt Date: 20180516
  Transmission Date: 20180711
  Serious: Yes (Other)
  Sender: FDA-Public Use
  Company Number: SG-PFIZER INC-2018155160

PATIENT
  Sex: Female
  Weight: 1.63 kg

DRUGS (1)
  1. IBUPROFEN. [Suspect]
     Active Substance: IBUPROFEN
     Indication: PATENT DUCTUS ARTERIOSUS
     Dosage: UNK
     Route: 048

REACTIONS (3)
  - Pneumatosis intestinalis [Recovered/Resolved]
  - Haematochezia [Recovered/Resolved]
  - Portal venous gas [Recovered/Resolved]
